FAERS Safety Report 9748659 (Version 1)
Quarter: 2013Q4

REPORT INFORMATION
  Report Type: Report from Study
  Country: JP (occurrence: JP)
  Receive Date: 20131212
  Receipt Date: 20131212
  Transmission Date: 20140711
  Serious: Yes (Other)
  Sender: FDA-Public Use
  Company Number: JP-ASTELLAS-2013JP013585

PATIENT
  Age: 40 Year
  Sex: Female

DRUGS (12)
  1. TACROLIMUS CAPSULES [Suspect]
     Indication: LUPUS NEPHRITIS
     Dosage: 2 MG, UNKNOWN/D
     Route: 048
     Dates: start: 20090903
  2. TACROLIMUS CAPSULES [Suspect]
     Dosage: 1 MG, UNKNOWN/D
     Route: 048
     Dates: start: 20090807, end: 20090902
  3. LEDERCORT                          /00031901/ [Concomitant]
     Indication: LUPUS NEPHRITIS
     Dosage: 8 MG, UNKNOWN/D
     Route: 048
     Dates: end: 20090902
  4. LEDERCORT                          /00031901/ [Concomitant]
     Dosage: 6 MG, UNKNOWN/D
     Route: 048
     Dates: start: 20090903, end: 20100205
  5. LEDERCORT                          /00031901/ [Concomitant]
     Dosage: UNK
     Route: 048
     Dates: start: 20100206, end: 20100625
  6. LEDERCORT                          /00031901/ [Concomitant]
     Dosage: 4 MG, UID/QD
     Route: 048
     Dates: start: 20100626
  7. GASTER [Concomitant]
     Indication: PROPHYLAXIS
     Dosage: 20 MG, UNKNOWN/D
     Route: 048
  8. ACECOL [Concomitant]
     Indication: LUPUS NEPHRITIS
     Dosage: UNK
     Route: 048
  9. ALFAROL [Concomitant]
     Indication: PROPHYLAXIS
     Dosage: UNK
     Route: 048
     Dates: end: 20120614
  10. NORVASC [Concomitant]
     Dosage: UNK
     Route: 048
  11. GLAKAY [Concomitant]
     Indication: PROPHYLAXIS
     Dosage: UNK
     Route: 048
  12. EDIROL [Concomitant]
     Indication: PROPHYLAXIS
     Dosage: UNK
     Route: 048
     Dates: start: 20120615

REACTIONS (1)
  - Renal disorder [Not Recovered/Not Resolved]
